FAERS Safety Report 13225412 (Version 1)
Quarter: 2017Q1

REPORT INFORMATION
  Report Type: Spontaneous
  Country: US (occurrence: US)
  Receive Date: 20170210
  Receipt Date: 20170210
  Transmission Date: 20170428
  Serious: Yes (Hospitalization)
  Sender: FDA-Public Use
  Company Number: None

PATIENT
  Age: 60 Year
  Sex: Female

DRUGS (8)
  1. MAXALT [Concomitant]
     Active Substance: RIZATRIPTAN BENZOATE
  2. GLATOPA [Suspect]
     Active Substance: GLATIRAMER ACETATE
     Indication: MULTIPLE SCLEROSIS
  3. AMANTADINE [Concomitant]
     Active Substance: AMANTADINE
  4. EFFEXOR [Concomitant]
     Active Substance: VENLAFAXINE HYDROCHLORIDE
  5. ONE-A-DAY NOS [Concomitant]
     Active Substance: MINERALS\VITAMINS
  6. SYNTHROID [Concomitant]
     Active Substance: LEVOTHYROXINE SODIUM
  7. CALCARB [Concomitant]
  8. INDOMHTHAC [Concomitant]

REACTIONS (1)
  - Drug dose omission [None]

NARRATIVE: CASE EVENT DATE: 201702
